FAERS Safety Report 13010812 (Version 1)
Quarter: 2016Q4

REPORT INFORMATION
  Report Type: Report from Study
  Country: DE (occurrence: DE)
  Receive Date: 20161208
  Receipt Date: 20161208
  Transmission Date: 20170207
  Serious: Yes (Death, Other)
  Sender: FDA-Public Use
  Company Number: DE-CELGENEUS-062-21880-13112485

PATIENT

DRUGS (3)
  1. REVLIMID [Suspect]
     Active Substance: LENALIDOMIDE
     Indication: PLASMA CELL MYELOMA
     Dosage: 25
     Route: 048
  2. DEXAMETHASONE. [Suspect]
     Active Substance: DEXAMETHASONE
     Indication: PLASMA CELL MYELOMA
     Dosage: 40
     Route: 048
  3. MELPHALAN [Suspect]
     Active Substance: MELPHALAN
     Indication: PLASMA CELL MYELOMA
     Route: 065

REACTIONS (27)
  - Pancytopenia [Unknown]
  - Asthenia [Unknown]
  - Cor pulmonale acute [Fatal]
  - Gastroenteritis [Unknown]
  - Respiratory failure [Fatal]
  - Hypersensitivity [Unknown]
  - Aneurysm ruptured [Fatal]
  - Leukopenia [Unknown]
  - Pneumonia [Fatal]
  - Scrotal infection [Unknown]
  - Sudden cardiac death [Fatal]
  - Staphylococcal infection [Unknown]
  - Plasma cell myeloma [Fatal]
  - Acute kidney injury [Fatal]
  - Death [Fatal]
  - Rash [Unknown]
  - Clostridial infection [Fatal]
  - Influenza [Fatal]
  - Abdominal pain upper [Unknown]
  - Sepsis [Fatal]
  - Paraplegia [Unknown]
  - Electrocardiogram T wave inversion [Unknown]
  - Granulocytopenia [Unknown]
  - Thrombocytopenia [Unknown]
  - Hypoaesthesia [Unknown]
  - Neutropenic sepsis [Fatal]
  - General physical health deterioration [Fatal]
